FAERS Safety Report 11289760 (Version 1)
Quarter: 2015Q3

REPORT INFORMATION
  Report Type: Spontaneous
  Country: US (occurrence: US)
  Receive Date: 20150721
  Receipt Date: 20150721
  Transmission Date: 20151125
  Serious: Yes (Hospitalization, Other)
  Sender: FDA-Public Use
  Company Number: US-BAUSCH-BL-2015-017253

PATIENT
  Age: 43 Year
  Sex: Male
  Weight: 79 kg

DRUGS (1)
  1. ATIVAN [Suspect]
     Active Substance: LORAZEPAM
     Indication: STRESS AT WORK
     Route: 048
     Dates: start: 20090625, end: 20140519

REACTIONS (7)
  - Treatment noncompliance [Unknown]
  - Medication error [Unknown]
  - Mental impairment [Not Recovered/Not Resolved]
  - Vertigo [Recovered/Resolved]
  - Insomnia [Not Recovered/Not Resolved]
  - Emotional disorder [Not Recovered/Not Resolved]
  - Depersonalisation [Not Recovered/Not Resolved]

NARRATIVE: CASE EVENT DATE: 20140519
